FAERS Safety Report 13313639 (Version 2)
Quarter: 2017Q1

REPORT INFORMATION
  Report Type: Spontaneous
  Country: US (occurrence: US)
  Receive Date: 20170309
  Receipt Date: 20170314
  Transmission Date: 20170428
  Serious: Yes (Death, Hospitalization)
  Sender: FDA-Public Use
  Company Number: US-CELGENEUS-USA-2017031541

PATIENT
  Age: 63 Year
  Sex: Male

DRUGS (8)
  1. CISPLATIN. [Concomitant]
     Active Substance: CISPLATIN
     Indication: PLASMA CELL LEUKAEMIA
     Route: 065
     Dates: start: 20170208
  2. DOXORUBICIN [Concomitant]
     Active Substance: DOXORUBICIN
     Indication: PLASMA CELL LEUKAEMIA
     Route: 065
     Dates: start: 20170208
  3. THALOMID [Suspect]
     Active Substance: THALIDOMIDE
     Indication: PLASMA CELL LEUKAEMIA
     Dosage: 100 MILLIGRAM
     Route: 048
     Dates: start: 20170210
  4. VELCADE [Concomitant]
     Active Substance: BORTEZOMIB
     Indication: PLASMA CELL LEUKAEMIA
     Route: 065
     Dates: start: 20170208
  5. CYCLOPHOSPHAMIDE. [Concomitant]
     Active Substance: CYCLOPHOSPHAMIDE
     Indication: PLASMA CELL LEUKAEMIA
     Route: 065
     Dates: start: 20170208
  6. ETOPOSIDE. [Concomitant]
     Active Substance: ETOPOSIDE
     Indication: PLASMA CELL LEUKAEMIA
     Route: 065
     Dates: start: 20170208
  7. THALOMID [Suspect]
     Active Substance: THALIDOMIDE
     Indication: PLASMA CELL MYELOMA
  8. DEXAMETHASONE. [Concomitant]
     Active Substance: DEXAMETHASONE
     Indication: PLASMA CELL LEUKAEMIA
     Route: 065
     Dates: start: 20170208

REACTIONS (5)
  - Ischaemic hepatitis [Fatal]
  - Disseminated intravascular coagulation [Unknown]
  - Tachycardia [Unknown]
  - Dyspnoea [Unknown]
  - Multiple organ dysfunction syndrome [Fatal]

NARRATIVE: CASE EVENT DATE: 201702
